FAERS Safety Report 8470413-X (Version None)
Quarter: 2012Q2

REPORT INFORMATION
  Report Type: 
  Country: None (occurrence: None)
  Receive Date: 20120620
  Receipt Date: 20120608
  Transmission Date: 20120825
  Serious: Yes (Other)
  Sender: FDA-Public Use
  Company Number: KAD201205-000309

PATIENT
  Age: 55 Year
  Sex: Male
  Weight: 61.23 kg

DRUGS (3)
  1. RIBAVIRIN [Suspect]
     Indication: HEPATITIS C
     Dosage: 1000 MG DAILY, 600 MG IN MORNING, 400 MG IN EVENING, ORAL
     Route: 048
     Dates: start: 20111213, end: 20120501
  2. PEGASYS [Suspect]
     Indication: HEPATITIS C
     Dosage: 180 ^MG^ WEEKLY, SUBCUTANEOUS
     Route: 058
     Dates: start: 20111213
  3. VICTRELIS [Suspect]
     Indication: HEPATITIS C
     Dosage: 4 CAPSULES 3 TIMES DAILY, ORAL
     Route: 048
     Dates: start: 20120108

REACTIONS (3)
  - WHITE BLOOD CELL COUNT DECREASED [None]
  - NEUTROPHIL COUNT DECREASED [None]
  - ANAEMIA [None]
